FAERS Safety Report 13757357 (Version 2)
Quarter: 2017Q4

REPORT INFORMATION
  Report Type: Report from Study
  Country: US (occurrence: US)
  Receive Date: 20170716
  Receipt Date: 20171005
  Transmission Date: 20180320
  Serious: Yes (Other)
  Sender: FDA-Public Use
  Company Number: US-BIOGEN-2017BI00429482

PATIENT
  Age: 49 Year
  Sex: Female

DRUGS (4)
  1. AVONEX [Suspect]
     Active Substance: INTERFERON BETA-1A
     Route: 030
  2. AVONEX [Suspect]
     Active Substance: INTERFERON BETA-1A
     Indication: MULTIPLE SCLEROSIS
     Route: 030
     Dates: start: 20071229, end: 20160622
  3. AVONEX [Suspect]
     Active Substance: INTERFERON BETA-1A
     Route: 030
     Dates: start: 20170707
  4. AVONEX [Suspect]
     Active Substance: INTERFERON BETA-1A
     Route: 030

REACTIONS (17)
  - Fall [Recovered/Resolved]
  - Contusion [Not Recovered/Not Resolved]
  - Laceration [Unknown]
  - Limb injury [Unknown]
  - Drug intolerance [Unknown]
  - Pyrexia [Not Recovered/Not Resolved]
  - Facial bones fracture [Unknown]
  - Wound haemorrhage [Unknown]
  - Influenza like illness [Unknown]
  - Joint crepitation [Unknown]
  - Anosmia [Unknown]
  - Dry mouth [Unknown]
  - Nerve injury [Not Recovered/Not Resolved]
  - Arthralgia [Unknown]
  - Gait inability [Unknown]
  - Pain [Not Recovered/Not Resolved]
  - Musculoskeletal pain [Unknown]

NARRATIVE: CASE EVENT DATE: 20170805
